FAERS Safety Report 14579403 (Version 2)
Quarter: 2018Q1

REPORT INFORMATION
  Report Type: Spontaneous
  Country: US (occurrence: US)
  Receive Date: 20180227
  Receipt Date: 20180314
  Transmission Date: 20180509
  Serious: Yes (Death)
  Sender: FDA-Public Use
  Company Number: US-TEIKOKU PHARMA USA-TPU2018-00122

PATIENT
  Age: 49 Year
  Sex: Female

DRUGS (24)
  1. PATANOL [Concomitant]
     Active Substance: OLOPATADINE HYDROCHLORIDE
     Indication: SEASONAL ALLERGY
  2. VITAMIN B12 [Concomitant]
     Active Substance: CYANOCOBALAMIN
  3. FOSAMAX [Concomitant]
     Active Substance: ALENDRONATE SODIUM
  4. PROTONIX [Concomitant]
     Active Substance: PANTOPRAZOLE SODIUM
  5. DITROPAN [Concomitant]
     Active Substance: OXYBUTYNIN CHLORIDE
  6. TYLENOL COLD + FLU [Concomitant]
     Dates: start: 20171219
  7. XYREM [Concomitant]
     Active Substance: SODIUM OXYBATE
     Indication: NARCOLEPSY
  8. IMMITREX [Concomitant]
     Indication: MIGRAINE
  9. SYNTHROID [Concomitant]
     Active Substance: LEVOTHYROXINE SODIUM
  10. COMPAZINE [Concomitant]
     Active Substance: PROCHLORPERAZINE MALEATE
  11. DILAUDID [Concomitant]
     Active Substance: HYDROMORPHONE HYDROCHLORIDE
     Indication: PAIN
  12. CLONODINE [Concomitant]
     Active Substance: CLONIDINE
  13. MACRODANTIN [Concomitant]
     Active Substance: NITROFURANTOIN
  14. RITALIN [Concomitant]
     Active Substance: METHYLPHENIDATE HYDROCHLORIDE
     Indication: NARCOLEPSY
  15. TOPAMAX [Concomitant]
     Active Substance: TOPIRAMATE
  16. VITAMIN D [Concomitant]
     Active Substance: CHOLECALCIFEROL
  17. CYSTEX [Concomitant]
     Active Substance: METHENAMINE\SODIUM SALICYLATE
  18. LIDODERM [Suspect]
     Active Substance: LIDOCAINE
     Indication: PAIN
  19. KLOR-CON [Concomitant]
     Active Substance: POTASSIUM CHLORIDE
     Indication: BLOOD POTASSIUM DECREASED
     Dosage: 1 TAB BID
  20. CARDIZEM [Concomitant]
     Active Substance: DILTIAZEM HYDROCHLORIDE
  21. PREGABALIN. [Concomitant]
     Active Substance: PREGABALIN
     Indication: PAIN
  22. SINGULAIR [Concomitant]
     Active Substance: MONTELUKAST SODIUM
     Indication: SEASONAL ALLERGY
  23. GRASTEK [Concomitant]
     Active Substance: PHLEUM PRATENSE POLLEN
     Indication: SEASONAL ALLERGY
  24. VIVARIN [Concomitant]
     Active Substance: CAFFEINE

REACTIONS (1)
  - Death [None]

NARRATIVE: CASE EVENT DATE: 20171222
